FAERS Safety Report 4620711-2 (Version None)
Quarter: 2005Q1

REPORT INFORMATION
  Report Type: 
  Country: None (occurrence: None)
  Receive Date: 20050325
  Receipt Date: 20050321
  Transmission Date: 20050727
  Serious: Yes (Death)
  Sender: FDA-Public Use
  Company Number: 2005AC00471

PATIENT
  Age: 75 Year
  Sex: Male

DRUGS (1)
  1. CANDESARTAN [Suspect]
     Dosage: 32 MG DAILY PO
     Route: 048

REACTIONS (4)
  - CIRCULATORY COLLAPSE [None]
  - PANCREATITIS ACUTE [None]
  - RENAL FAILURE [None]
  - RESPIRATORY FAILURE [None]
